FAERS Safety Report 9841852 (Version 1)
Quarter: 2014Q1

REPORT INFORMATION
  Report Type: Spontaneous
  Country: AU (occurrence: AU)
  Receive Date: 20140124
  Receipt Date: 20140124
  Transmission Date: 20141002
  Serious: Yes (Other)
  Sender: FDA-Public Use
  Company Number: AU-BAYER-2014-011863

PATIENT
  Sex: Female

DRUGS (1)
  1. NEXAVAR 200 MG [Suspect]
     Dosage: UNK
     Dates: start: 201304, end: 201401

REACTIONS (1)
  - Acute leukaemia [None]
